FAERS Safety Report 4643136-2 (Version None)
Quarter: 2005Q2

REPORT INFORMATION
  Report Type: 
  Country: None (occurrence: None)
  Receive Date: 20050422
  Receipt Date: 20050325
  Transmission Date: 20051028
  Serious: Yes (Hospitalization)
  Sender: FDA-Public Use
  Company Number: FR-MERCK-0503FRA00107

PATIENT
  Age: 78 Year
  Sex: Female
  Weight: 76 kg

DRUGS (12)
  1. ZOCOR [Suspect]
     Indication: HYPERCHOLESTEROLAEMIA
     Route: 048
     Dates: start: 20020630, end: 20041110
  2. AMIODARONE HYDROCHLORIDE [Suspect]
     Route: 048
     Dates: start: 20030805, end: 20040825
  3. VERAPAMIL HYDROCHLORIDE [Concomitant]
     Route: 048
  4. PRINIVIL [Concomitant]
     Route: 048
  5. FLECAINIDE ACETATE [Concomitant]
     Route: 048
  6. PREDNISONE [Concomitant]
     Route: 048
  7. OMEPRAZOLE [Concomitant]
     Route: 048
  8. FLUINDIONE [Concomitant]
     Indication: ATRIAL FIBRILLATION
     Route: 048
  9. ZOLPIDEM TARTRATE [Concomitant]
     Route: 048
  10. BROMAZEPAM [Concomitant]
     Route: 048
  11. TERBUTALINE SULFATE [Concomitant]
     Indication: CHRONIC OBSTRUCTIVE PULMONARY DISEASE
     Route: 055
  12. IPRATROPIUM BROMIDE [Concomitant]
     Indication: CHRONIC OBSTRUCTIVE PULMONARY DISEASE
     Route: 055

REACTIONS (1)
  - CRYPTOGENIC ORGANIZING PNEUMONIA [None]
